FAERS Safety Report 14184555 (Version 2)
Quarter: 2017Q4

REPORT INFORMATION
  Report Type: Spontaneous
  Country: ES (occurrence: ES)
  Receive Date: 20171113
  Receipt Date: 20171117
  Transmission Date: 20180321
  Serious: Yes (Other)
  Sender: FDA-Public Use
  Company Number: ES-PFIZER INC-2017484336

PATIENT
  Age: 84 Year
  Sex: Female

DRUGS (2)
  1. TRANGOREX [Suspect]
     Active Substance: AMIODARONE HYDROCHLORIDE
     Dosage: UNK
     Route: 048
     Dates: start: 2017, end: 201705
  2. RANEXA [Interacting]
     Active Substance: RANOLAZINE
     Dosage: UNK
     Route: 048
     Dates: start: 2017

REACTIONS (2)
  - Labelled drug-drug interaction medication error [Unknown]
  - Syncope [Recovered/Resolved]

NARRATIVE: CASE EVENT DATE: 2017
